FAERS Safety Report 8763006 (Version 2)
Quarter: 2012Q4

REPORT INFORMATION
  Report Type: Spontaneous
  Country: PL (occurrence: None)
  Receive Date: 20120823
  Receipt Date: 20120910
  Transmission Date: 20130627
  Serious: Yes (Life-Threatening, Hospitalization, Other)
  Sender: FDA-Public Use
  Company Number: 2012P1054014

PATIENT
  Age: 29 Year
  Sex: Male

DRUGS (1)
  1. DIGOXIN [Suspect]
     Indication: SUICIDE ATTEMPT

REACTIONS (9)
  - Arrhythmia [None]
  - Conduction disorder [None]
  - Suicide attempt [None]
  - Overdose [None]
  - Asthenia [None]
  - Psychomotor retardation [None]
  - Pallor [None]
  - Heart rate irregular [None]
  - Leukocytosis [None]
